FAERS Safety Report 6031128-0 (Version None)
Quarter: 2008Q4

REPORT INFORMATION
  Report Type: 
  Country: None (occurrence: None)
  Receive Date: 20081222
  Receipt Date: 20081119
  Transmission Date: 20090506
  Serious: No
  Sender: FDA-Public Use
  Company Number: US-WYE-H06919408

PATIENT
  Age: 34 Year
  Sex: Female
  Weight: 118.04 kg

DRUGS (9)
  1. PRISTIQ [Suspect]
     Indication: DEPRESSION
     Dosage: 100 MG 1X PER 1 DAY, ORAL : 50 MG 1X PER 1 DAY, ORAL
     Route: 048
     Dates: start: 20081019, end: 20081118
  2. PRISTIQ [Suspect]
     Indication: DEPRESSION
     Dosage: 100 MG 1X PER 1 DAY, ORAL : 50 MG 1X PER 1 DAY, ORAL
     Route: 048
     Dates: start: 20081119
  3. LEXAPRO [Concomitant]
  4. CALTRATE 600 + VITAMIN D (CALCIUM CARBONATE/VITAMIN D) [Concomitant]
  5. MIRENA [Concomitant]
  6. FIBERCON (CALCIUM POLYCARBOPHIL) [Concomitant]
  7. MULTIVITAMINS (ASCORBIC ACID/ERGOCALCIFEROL/FOLIC ACID/NICOTINAMIDE/PA [Concomitant]
  8. ALBUTEROL [Concomitant]
  9. HYDROXYZINE [Concomitant]

REACTIONS (6)
  - ABNORMAL SENSATION IN EYE [None]
  - CHEST PAIN [None]
  - CRYING [None]
  - DRUG INEFFECTIVE [None]
  - FEELING ABNORMAL [None]
  - IRRITABILITY [None]
